FAERS Safety Report 8346865-2 (Version None)
Quarter: 2012Q2

REPORT INFORMATION
  Report Type: 
  Country: None (occurrence: None)
  Receive Date: 20120509
  Receipt Date: 20120502
  Transmission Date: 20120825
  Serious: Yes (Life-Threatening, Hospitalization, Other)
  Sender: FDA-Public Use
  Company Number: IL-SANOFI-AVENTIS-2011SA078958

PATIENT
  Age: 62 Year
  Sex: Male

DRUGS (50)
  1. PLAVIX [Suspect]
     Route: 065
     Dates: start: 20110327
  2. CEFUROXIME [Concomitant]
     Dates: start: 20111007, end: 20111010
  3. SIMVASTATIN [Concomitant]
     Dosage: FIRST REPORTED ON 27 MARCH 2011
     Dates: end: 20110925
  4. LIPITOR [Concomitant]
     Dates: start: 20110926
  5. DIURETICS [Concomitant]
     Dosage: FIRST REPORTED ON 22 DECEMBER2010
     Dates: start: 20101222
  6. DIURETICS [Concomitant]
     Dosage: FIRST REPORTED ON 04 JULY 2011
     Dates: start: 20110327
  7. PLATELET AGGREGATION INHIBITORS [Concomitant]
     Dosage: FIRST REPORTED ON 22 DECEMBER2010
     Dates: start: 20101222
  8. HMG COA REDUCTASE INHIBITORS [Concomitant]
     Dates: start: 20110704
  9. HMG COA REDUCTASE INHIBITORS [Concomitant]
     Dates: start: 20110327
  10. APIDRA [Concomitant]
     Dosage: BEFORE RANDOMIZATION
  11. SOLU-MEDROL [Concomitant]
     Dosage: THERAPY END DATE: 10 FEB 2012
     Dates: start: 20120208, end: 20120210
  12. CIPRODEX [Concomitant]
     Dates: start: 20111024, end: 20111102
  13. BISOPROLOL FUMARATE [Concomitant]
  14. AEROVENT [Concomitant]
     Dates: start: 20110929
  15. ANTITHROMBOTIC AGENTS [Concomitant]
     Dosage: FIRST REPORTED ON 04 JULY 2011
     Dates: start: 20110704
  16. ANTITHROMBOTIC AGENTS [Concomitant]
     Dates: start: 20101222
  17. ALL OTHER THERAPEUTIC PRODUCTS [Concomitant]
     Dosage: FIRST REPORTED ON 22 DECEMBER 2010
     Dates: start: 20111222
  18. NYSTATIN [Concomitant]
     Dosage: THERAPY END DATE: 16 FEB 2012
     Dates: start: 20120209, end: 20120216
  19. RULID [Concomitant]
     Dates: start: 20110922, end: 20111010
  20. SIMVASTATIN [Concomitant]
     Dosage: FIRST REPORTED ON 22 DECEMBER 2010
     Dates: end: 20110925
  21. ANTITHROMBOTIC AGENTS [Concomitant]
     Dosage: FIRST REPORTED ON22 DEC 2010
     Dates: start: 20110327
  22. ALDOSTERONE [Concomitant]
     Dosage: FIRST REPORTED ON 22 DECEMBER 2010
     Dates: start: 20101222
  23. PLAVIX [Suspect]
     Route: 065
     Dates: start: 20101222
  24. PLAVIX [Suspect]
     Route: 065
     Dates: start: 20111128
  25. LANTUS [Concomitant]
     Dosage: BEFORE RANDOMIZATION
  26. OPTALGIN [Concomitant]
     Dosage: THERPAY END DATE: 10 FEB 2012
     Dates: start: 20120202, end: 20120210
  27. BETA BLOCKING AGENTS [Concomitant]
     Dosage: FIRST REPORTED ON 27 MARCH 2011
     Dates: start: 20110704
  28. ALDOSTERONE [Concomitant]
     Dosage: FIRST REPORTED ON 27 MARCH 2011
     Dates: start: 20110704
  29. PLATELET AGGREGATION INHIBITORS [Concomitant]
     Dosage: FIRST REPORTED ON 04 JULY 2011
     Dates: start: 20110327
  30. SIMVASTATIN [Concomitant]
     Dosage: FIRST REPORTED ON 04 JULY 2011
     Dates: end: 20110925
  31. BEZALIP [Concomitant]
     Dates: start: 20110926
  32. COUMADIN [Concomitant]
     Dates: end: 20110922
  33. ASPIRIN [Concomitant]
     Dates: start: 20110924
  34. TRAMADEX [Concomitant]
     Dates: start: 20120207, end: 20120207
  35. AMIKACIN [Concomitant]
     Dates: start: 20111021, end: 20111023
  36. BETA BLOCKING AGENTS [Concomitant]
     Dosage: FIRST REPORTED ON 22 DECEMBER2010
     Dates: start: 20101222
  37. BETA BLOCKING AGENTS [Concomitant]
     Dosage: FIRST REPORTED ON 04 JULY 2011
     Dates: start: 20110327
  38. DIURETICS [Concomitant]
     Dosage: FIRST REPORTED ON 27 MARCH 2011
     Dates: start: 20110704
  39. ACE INHIBITOR NOS [Concomitant]
     Dosage: FIRST REPORTED ON 22 DECEMBER 2010
     Dates: start: 20111222
  40. HMG COA REDUCTASE INHIBITORS [Concomitant]
     Dosage: FIRST REPORTED ON 22 DECEMBER 2010
     Dates: start: 20101222
  41. ZINACEF /UNK/ [Concomitant]
     Dates: start: 20110923, end: 20110929
  42. ALDOSTERONE [Concomitant]
     Dosage: FIRST REPORTED ON 04 JULY 2011
     Dates: start: 20110327
  43. ACE INHIBITOR NOS [Concomitant]
     Dosage: FIRST REPORTED ON 04 JULY 2011
     Dates: start: 20110704
  44. PLAVIX [Suspect]
     Route: 065
     Dates: end: 20110704
  45. ROCEPHIN [Concomitant]
     Dates: start: 20110929, end: 20111006
  46. OMEPRADEX [Concomitant]
     Dates: start: 20111002
  47. FERROCAL [Concomitant]
     Dates: start: 20111021
  48. RAMIPRIL [Concomitant]
  49. PLATELET AGGREGATION INHIBITORS [Concomitant]
     Dosage: FIRST REPORTED ON 27 MARCH 2011
     Dates: start: 20110704
  50. ACE INHIBITOR NOS [Concomitant]
     Dates: start: 20110327

REACTIONS (17)
  - ACUTE RESPIRATORY FAILURE [None]
  - SEPSIS [None]
  - CARDIAC FAILURE CONGESTIVE [None]
  - RENAL FAILURE [None]
  - HAEMOGLOBIN DECREASED [None]
  - BLOOD UREA INCREASED [None]
  - PNEUMONIA [None]
  - HAEMOPTYSIS [None]
  - MYALGIA [None]
  - MELAENA [None]
  - PYREXIA [None]
  - DYSPNOEA [None]
  - COUGH [None]
  - GASTROINTESTINAL HAEMORRHAGE [None]
  - ANAEMIA [None]
  - WEGENER'S GRANULOMATOSIS [None]
  - CATARACT [None]
